FAERS Safety Report 9312249 (Version 3)
Quarter: 2013Q3

REPORT INFORMATION
  Report Type: Report from Study
  Country: PR (occurrence: PR)
  Receive Date: 20130528
  Receipt Date: 20130813
  Transmission Date: 20140515
  Serious: Yes (Hospitalization)
  Sender: FDA-Public Use
  Company Number: PR-ABBOTT-13P-131-1092638-00

PATIENT
  Age: 40 Year
  Sex: Male
  Weight: 88.53 kg

DRUGS (10)
  1. HUMIRA [Suspect]
     Indication: ANKYLOSING SPONDYLITIS
     Route: 058
     Dates: end: 201211
  2. HUMIRA [Suspect]
     Route: 058
     Dates: start: 20121201, end: 201212
  3. HUMIRA [Suspect]
     Route: 058
     Dates: start: 201301, end: 20130419
  4. HUMIRA [Suspect]
     Route: 058
     Dates: start: 20130715
  5. KLONOPIN [Concomitant]
     Indication: TREMOR
     Route: 048
  6. NEURONTIN [Concomitant]
     Indication: TREMOR
     Route: 048
  7. CYMBALTA [Concomitant]
     Indication: ANXIETY
     Route: 048
  8. NORVASC [Concomitant]
     Indication: HYPERTENSION
     Route: 048
     Dates: start: 201212
  9. ACETAMINOPHEN [Concomitant]
     Indication: ARTHRITIS
     Route: 048
  10. ACETAMINOPHEN [Concomitant]
     Indication: PYREXIA

REACTIONS (7)
  - Pyrexia [Recovered/Resolved]
  - Asthenia [Recovering/Resolving]
  - Cough [Not Recovered/Not Resolved]
  - Headache [Not Recovered/Not Resolved]
  - Pyrexia [Recovered/Resolved]
  - Abdominal pain [Not Recovered/Not Resolved]
  - Muscle spasms [Not Recovered/Not Resolved]
